FAERS Safety Report 9293210 (Version 1)
Quarter: 2013Q2

REPORT INFORMATION
  Report Type: Spontaneous
  Country: US (occurrence: US)
  Receive Date: 20130516
  Receipt Date: 20130516
  Transmission Date: 20140414
  Serious: No
  Sender: FDA-Public Use
  Company Number: US-PFIZER INC-2013149084

PATIENT
  Age: 63 Year
  Sex: Female

DRUGS (4)
  1. LEVOXYL [Suspect]
     Indication: THYROID DISORDER
     Dosage: 100 UG, 1X/DAY
     Dates: start: 1970
  2. LEVOXYL [Suspect]
     Dosage: 112 UG, 1X/DAY
  3. LEVOXYL [Suspect]
     Dosage: 100 UG, 1X/DAY
     Dates: end: 201304
  4. CHLORTHALIDONE [Concomitant]
     Indication: HYPERTENSION
     Dosage: 50 MG, 1X/DAY

REACTIONS (2)
  - Drug ineffective [Unknown]
  - Thyroid function test abnormal [Unknown]
